FAERS Safety Report 6156851-9 (Version None)
Quarter: 2009Q2

REPORT INFORMATION
  Report Type: 
  Country: None (occurrence: None)
  Receive Date: 20090416
  Receipt Date: 20090406
  Transmission Date: 20091009
  Serious: Yes (Life-Threatening, Hospitalization, Other)
  Sender: FDA-Public Use
  Company Number: AU-ELI_LILLY_AND_COMPANY-AU200902000867

PATIENT
  Age: 57 Year
  Sex: Female

DRUGS (2)
  1. CYMBALTA [Suspect]
     Indication: DEPRESSION
     Dosage: 90 MG, DAILY (1/D)
     Route: 065
     Dates: start: 20081001, end: 20090101
  2. CLOZAPINE [Interacting]
     Indication: SCHIZOPHRENIA
     Dosage: 300 MG, UNKNOWN
     Route: 065
     Dates: start: 20090105, end: 20090120

REACTIONS (5)
  - CORONARY ARTERY STENOSIS [None]
  - DRUG INTERACTION [None]
  - DRUG LEVEL INCREASED [None]
  - MYOCARDIAL INFARCTION [None]
  - MYOCARDITIS [None]
